FAERS Safety Report 7065156-3 (Version None)
Quarter: 2010Q4

REPORT INFORMATION
  Report Type: 
  Country: None (occurrence: None)
  Receive Date: 20101019
  Receipt Date: 20101008
  Transmission Date: 20110411
  Serious: Yes (Life-Threatening, Other)
  Sender: FDA-Public Use
  Company Number: ALA_00606_2010

PATIENT
  Sex: Female
  Weight: 62.5964 kg

DRUGS (1)
  1. PREFERAOB ONE [Suspect]
     Indication: NUTRITIONAL SUPPORT
     Dosage: (1 DF QD ORAL)
     Route: 048
     Dates: start: 20100501, end: 20100714

REACTIONS (7)
  - HEADACHE [None]
  - LIP SWELLING [None]
  - OROPHARYNGEAL SWELLING [None]
  - PARAESTHESIA ORAL [None]
  - PHARYNGEAL OEDEMA [None]
  - PRODUCT QUALITY ISSUE [None]
  - SWOLLEN TONGUE [None]
